FAERS Safety Report 4465685-2 (Version None)
Quarter: 2004Q4

REPORT INFORMATION
  Report Type: 
  Country: None (occurrence: None)
  Receive Date: 20041004
  Receipt Date: 20040927
  Transmission Date: 20050328
  Serious: Yes (Life-Threatening, Hospitalization)
  Sender: FDA-Public Use
  Company Number: GB-MERCK-0409USA02188

PATIENT
  Age: 85 Year
  Sex: Female

DRUGS (6)
  1. ADCAL-D3 [Concomitant]
     Indication: OSTEOPOROSIS
     Route: 065
     Dates: start: 20030101
  2. CETIRIZINE HYDROCHLORIDE [Concomitant]
     Route: 048
     Dates: start: 20030101, end: 20040726
  3. ERYTHROMYCIN [Concomitant]
     Indication: LOWER RESPIRATORY TRACT INFECTION
     Route: 048
     Dates: start: 20040628, end: 20040705
  4. FERROUS SULFATE [Concomitant]
     Indication: ANAEMIA
     Route: 048
     Dates: start: 20030101, end: 20040726
  5. FUROSEMIDE [Concomitant]
     Route: 048
     Dates: start: 20030101, end: 20040726
  6. PRINIVIL [Suspect]
     Indication: CARDIAC FAILURE
     Route: 048
     Dates: start: 20030109, end: 20040723

REACTIONS (3)
  - DYSPNOEA [None]
  - SPEECH DISORDER [None]
  - SWOLLEN TONGUE [None]
